FAERS Safety Report 9036934 (Version 1)
Quarter: 2013Q1

REPORT INFORMATION
  Report Type: Spontaneous
  Country: US (occurrence: None)
  Receive Date: 20130118
  Receipt Date: 20130118
  Transmission Date: 20140127
  Serious: Yes (Life-Threatening, Disabling, Other)
  Sender: FDA-Public Use
  Company Number: None

PATIENT
  Age: 54 Year
  Sex: Female
  Weight: 79.83 kg

DRUGS (1)
  1. CIPRODEX [Suspect]
     Indication: EAR INFECTION
     Dosage: 3 DROPS TWICE DAILY
     Dates: start: 20120921, end: 20120921

REACTIONS (7)
  - Headache [None]
  - Blood pressure increased [None]
  - Nausea [None]
  - Abdominal discomfort [None]
  - Ear pain [None]
  - Ear congestion [None]
  - Dyspnoea [None]
